FAERS Safety Report 15186821 (Version 1)
Quarter: 2018Q3

REPORT INFORMATION
  Report Type: Report from Study
  Country: US (occurrence: US)
  Receive Date: 20180723
  Receipt Date: 20180723
  Transmission Date: 20181010
  Serious: No
  Sender: FDA-Public Use
  Company Number: US-EXELIXIS-CABO-17011570

PATIENT
  Sex: Male

DRUGS (13)
  1. CALCITROL [Concomitant]
     Active Substance: CALCITRIOL
  2. QUESTRAN [Concomitant]
     Active Substance: CHOLESTYRAMINE
  3. PROBIOTIC [Concomitant]
     Active Substance: PROBIOTICS NOS
  4. NATEGLINIDE. [Concomitant]
     Active Substance: NATEGLINIDE
  5. ASPIRIN. [Concomitant]
     Active Substance: ASPIRIN
  6. PROPRANOLOL [Concomitant]
     Active Substance: PROPRANOLOL HYDROCHLORIDE
  7. LEVETIRACETAM. [Concomitant]
     Active Substance: LEVETIRACETAM
  8. GERITOL [Concomitant]
     Active Substance: MINERALS\VITAMINS
  9. VITAMIN D3 [Concomitant]
     Active Substance: CHOLECALCIFEROL
  10. ONDANSETRON [Concomitant]
     Active Substance: ONDANSETRON
  11. CABOMETYX [Suspect]
     Active Substance: CABOZANTINIB S-MALATE
     Indication: RENAL CANCER
     Dosage: 40 MG, QD
     Route: 048
     Dates: start: 20170112
  12. LEVOTHYROXINE. [Concomitant]
     Active Substance: LEVOTHYROXINE
  13. KLONOPIN [Concomitant]
     Active Substance: CLONAZEPAM

REACTIONS (5)
  - Eating disorder [Unknown]
  - Road traffic accident [Unknown]
  - Drug ineffective [Unknown]
  - Insomnia [Unknown]
  - Malignant neoplasm progression [Unknown]
